FAERS Safety Report 21423315 (Version 1)
Quarter: 2022Q4

REPORT INFORMATION
  Report Type: Spontaneous
  Country: US (occurrence: US)
  Receive Date: 20221007
  Receipt Date: 20221007
  Transmission Date: 20230112
  Serious: Yes (Death, Other)
  Sender: FDA-Public Use
  Company Number: US-GLAXOSMITHKLINE-US2022141984

PATIENT

DRUGS (1)
  1. ADVAIR HFA [Suspect]
     Active Substance: FLUTICASONE PROPIONATE\SALMETEROL XINAFOATE
     Indication: Chronic obstructive pulmonary disease
     Dosage: UNK ADVAIR HFA 230/ 21MCG INH 12 GM

REACTIONS (3)
  - Cardiac disorder [Fatal]
  - Labelled drug-disease interaction issue [Unknown]
  - Product use in unapproved indication [Unknown]
